FAERS Safety Report 8535200-2 (Version None)
Quarter: 2012Q3

REPORT INFORMATION
  Report Type: 
  Country: None (occurrence: None)
  Receive Date: 20120724
  Receipt Date: 20120717
  Transmission Date: 20120928
  Serious: Yes (Life-Threatening)
  Sender: FDA-Public Use
  Company Number: CHPA2012US015854

PATIENT
  Age: 64 Year
  Sex: Female

DRUGS (1)
  1. MAALOX ADV MAXIMUM STRENGTH ANTACID/ANTIGAS [Suspect]
     Indication: GASTROOESOPHAGEAL REFLUX DISEASE
     Dosage: UNK, UNK
     Route: 048
     Dates: start: 20120401

REACTIONS (7)
  - FLATULENCE [None]
  - ABDOMINAL DISCOMFORT [None]
  - MUSCLE TIGHTNESS [None]
  - ABDOMINAL PAIN UPPER [None]
  - PAIN [None]
  - OFF LABEL USE [None]
  - ERUCTATION [None]
